FAERS Safety Report 8791294 (Version 1)
Quarter: 2012Q4

REPORT INFORMATION
  Report Type: 
  Country: US (occurrence: None)
  Receive Date: 20120911
  Receipt Date: 20120911
  Transmission Date: 20130627
  Serious: Yes (Hospitalization)
  Sender: FDA-Public Use
  Company Number: 2012ZX000316

PATIENT
  Age: 59 Year
  Sex: Female
  Weight: 66.68 kg

DRUGS (8)
  1. SUMAVEL DOSEPRO [Suspect]
     Dates: start: 201202
  2. SUMAVEL DOSEPRO [Suspect]
     Dates: start: 201205
  3. SUMAVEL DOSEPRO [Suspect]
     Dates: start: 20120828, end: 20120828
  4. IMITREX [Concomitant]
  5. ABILIFY [Concomitant]
  6. LITHIUM [Concomitant]
  7. PRISTIQ [Concomitant]
  8. PROZAC [Concomitant]

REACTIONS (2)
  - Gastrointestinal haemorrhage [None]
  - Injection site bruising [None]
